FAERS Safety Report 7819668-2 (Version None)
Quarter: 2011Q4

REPORT INFORMATION
  Report Type: 
  Country: None (occurrence: None)
  Receive Date: 20111018
  Receipt Date: 20111011
  Transmission Date: 20120403
  Serious: Yes (Other)
  Sender: FDA-Public Use
  Company Number: US-PFIZER INC-2011143960

PATIENT
  Sex: Male

DRUGS (1)
  1. SUTENT [Suspect]
     Dosage: 50 MG DAILY X 28 DAYS Q42 DAYS
     Dates: start: 20110606

REACTIONS (1)
  - WHITE BLOOD CELL COUNT INCREASED [None]
